FAERS Safety Report 6236945-X (Version None)
Quarter: 2009Q2

REPORT INFORMATION
  Report Type: 
  Country: None (occurrence: None)
  Receive Date: 20090619
  Receipt Date: 20090219
  Transmission Date: 20091009
  Serious: No
  Sender: FDA-Public Use
  Company Number: US-ASTRAZENECA-2009UW04805

PATIENT
  Age: 18890 Day
  Sex: Male
  Weight: 158.3 kg

DRUGS (5)
  1. SYMBICORT [Suspect]
     Indication: ASTHMA
     Route: 055
     Dates: start: 20090120, end: 20090214
  2. SYMBICORT [Suspect]
     Route: 055
     Dates: start: 20090217, end: 20090217
  3. AVODART [Concomitant]
     Indication: BENIGN PROSTATIC HYPERPLASIA
  4. UROXATRAL [Concomitant]
     Indication: BENIGN PROSTATIC HYPERPLASIA
  5. BENICAR [Concomitant]
     Indication: HYPERTENSION

REACTIONS (2)
  - BLISTER [None]
  - URTICARIA [None]
